FAERS Safety Report 7946057 (Version 8)
Quarter: 2013Q1

REPORT INFORMATION
  Report Type: Spontaneous
  Country: US (occurrence: US)
  Receive Date: 20110516
  Receipt Date: 20130201
  Transmission Date: 20140127
  Serious: Yes (Other)
  Sender: FDA-Public Use
  Company Number: US-ALEXION-A201100588

PATIENT
  Age: 64 Year
  Sex: Male

DRUGS (24)
  1. SOLIRIS 300MG [Suspect]
     Indication: PAROXYSMAL NOCTURNAL HAEMOGLOBINURIA
     Dosage: 600 MG, QW
     Route: 042
     Dates: start: 20101029, end: 20101119
  2. SOLIRIS 300MG [Suspect]
     Dosage: 900 MG, Q2W
     Route: 042
     Dates: start: 20101223
  3. LIPITOR [Concomitant]
  4. ALPHAGAN P [Concomitant]
     Dosage: UNK
  5. CIPRO [Concomitant]
     Dosage: 500 MG, BID
  6. CITALOPRAM HYDROBROMIDE [Concomitant]
     Dosage: 20 MG, QD
     Route: 048
     Dates: start: 201103
  7. CLONAZEPAM [Concomitant]
     Dosage: 0.5 MG, QD
     Route: 048
  8. COSOPT [Concomitant]
     Dosage: UNK
  9. DESONIDE [Concomitant]
     Dosage: APPLY 1 TOPICAL, PRN
     Route: 061
     Dates: start: 201103
  10. DIFLUCAN [Concomitant]
     Dosage: 100 MG, QD
  11. EXJADE [Concomitant]
     Indication: BLOOD IRON INCREASED
     Dosage: 500 MG (SOLUBLE TABLET), QD
     Route: 048
  12. EXJADE [Concomitant]
     Dosage: 500 MG, QD
     Dates: end: 20100805
  13. IMIQUIMOD [Concomitant]
     Dosage: APPLY 5% TOPICAL Q 2 DAYS
     Route: 061
  14. LEVOXYL [Concomitant]
     Dosage: 125 UG, QD
  15. NEXIUM [Concomitant]
     Dosage: 20 MG (DELAYED RELEASE), QD
  16. VITAMIN D [Concomitant]
     Indication: VITAMIN D DECREASED
     Dosage: 50000 IU, Q 4 WEEKS
  17. XALATAN [Concomitant]
     Dosage: 1 AT BEDTIME
  18. CYCLOSPORINE [Concomitant]
     Dosage: 200 MG, QD
     Dates: end: 20100805
  19. CYCLOSPORINE [Concomitant]
     Dosage: 400 MG, AC PM
     Route: 048
     Dates: end: 20100609
  20. DOXYCYCLINE HYCLATE [Concomitant]
     Dosage: 100 MG, BID (1 TABLET Q 12 HOURS)
     Dates: end: 20100607
  21. DOXYCYCLINE HYCLATE [Concomitant]
     Dosage: UNK
     Dates: end: 20100622
  22. FAMVIR [Concomitant]
     Dosage: TAKE AS DIRECTED
     Route: 048
     Dates: end: 20100805
  23. PREDNISONE [Concomitant]
     Dosage: UNK
     Dates: end: 20100622
  24. KLACKS [Concomitant]
     Dosage: UNK

REACTIONS (3)
  - Basal cell carcinoma [Recovered/Resolved]
  - Platelet count decreased [Recovering/Resolving]
  - Myalgia [Recovered/Resolved]
